FAERS Safety Report 6059123-6 (Version None)
Quarter: 2009Q1

REPORT INFORMATION
  Report Type: 
  Country: None (occurrence: None)
  Receive Date: 20090130
  Receipt Date: 20090122
  Transmission Date: 20090719
  Serious: Yes (Other)
  Sender: FDA-Public Use
  Company Number: US-JNJFOC-20080105256

PATIENT
  Sex: Female
  Weight: 83.92 kg

DRUGS (1)
  1. ORTHO EVRA [Suspect]
     Indication: CONTRACEPTION
     Route: 062

REACTIONS (12)
  - APHASIA [None]
  - DEEP VEIN THROMBOSIS [None]
  - DYSTONIA [None]
  - DYSURIA [None]
  - FLANK PAIN [None]
  - ILEUS [None]
  - POST PROCEDURAL COMPLICATION [None]
  - RENAL CYST [None]
  - THROMBOCYTHAEMIA [None]
  - THROMBOPHLEBITIS SEPTIC [None]
  - VAGINAL HAEMORRHAGE [None]
  - VAGINAL PROLAPSE [None]
